FAERS Safety Report 25620898 (Version 1)
Quarter: 2025Q3

REPORT INFORMATION
  Report Type: Spontaneous
  Country: US (occurrence: US)
  Receive Date: 20250730
  Receipt Date: 20250730
  Transmission Date: 20251021
  Serious: Yes (Other)
  Sender: AMNEAL
  Company Number: US-AMNEAL-2025-AMRX-01248

PATIENT
  Sex: Female
  Weight: 98 kg

DRUGS (1)
  1. BACLOFEN [Suspect]
     Active Substance: BACLOFEN
     Indication: Product used for unknown indication
     Dosage: 450 MICROGRAM, PER 24 HOURS (2,000 MCG/ML)
     Route: 037

REACTIONS (1)
  - Muscle spasticity [Recovered/Resolved]
